FAERS Safety Report 6073872-5 (Version None)
Quarter: 2009Q1

REPORT INFORMATION
  Report Type: 
  Country: None (occurrence: None)
  Receive Date: 20090211
  Receipt Date: 20090130
  Transmission Date: 20090719
  Serious: Yes (Hospitalization)
  Sender: FDA-Public Use
  Company Number: FR-PFIZER INC-2009164424

PATIENT

DRUGS (5)
  1. ADRIBLASTIN [Suspect]
     Indication: HODGKIN'S DISEASE
     Route: 042
     Dates: start: 20080609, end: 20080625
  2. DETICENE [Suspect]
     Indication: HODGKIN'S DISEASE
     Route: 042
     Dates: start: 20080609, end: 20080625
  3. VELBE [Suspect]
     Indication: HODGKIN'S DISEASE
     Route: 042
     Dates: start: 20080609, end: 20080625
  4. BLEOMYCIN [Suspect]
     Indication: HODGKIN'S DISEASE
     Dosage: 15 MG
     Route: 042
     Dates: start: 20080609, end: 20080625
  5. ZELITREX [Concomitant]
     Indication: VARICELLA
     Dosage: 1000 MG DAILY
     Route: 048
     Dates: start: 20080526

REACTIONS (2)
  - CYTOLYTIC HEPATITIS [None]
  - HEPATITIS CHOLESTATIC [None]
